FAERS Safety Report 18772271 (Version 8)
Quarter: 2025Q3

REPORT INFORMATION
  Report Type: Report from Study
  Country: EU (occurrence: EU)
  Receive Date: 20210121
  Receipt Date: 20250728
  Transmission Date: 20251020
  Serious: Yes (Death, Life-Threatening, Hospitalization, Disabling, Other)
  Sender: ABBVIE
  Company Number: EU-ABBVIE-21K-144-3737362-00

PATIENT
  Age: 16 Year
  Sex: Male
  Weight: 43 kg

DRUGS (3)
  1. HUMIRA [Suspect]
     Active Substance: ADALIMUMAB
     Indication: Crohn^s disease
     Route: 058
     Dates: start: 20170810, end: 20210118
  2. AZATHIOPRINE [Suspect]
     Active Substance: AZATHIOPRINE
     Indication: Crohn^s disease
     Route: 048
     Dates: start: 20171128, end: 20210118
  3. AZATHIOPRINE [Suspect]
     Active Substance: AZATHIOPRINE
     Indication: Crohn^s disease
     Route: 048
     Dates: start: 20170311, end: 20171126

REACTIONS (2)
  - Multiple organ dysfunction syndrome [Fatal]
  - Hepatosplenic T-cell lymphoma [Fatal]

NARRATIVE: CASE EVENT DATE: 20210112
